FAERS Safety Report 9367137 (Version 3)
Quarter: 2014Q1

REPORT INFORMATION
  Report Type: Spontaneous
  Country: JP (occurrence: JP)
  Receive Date: 20130625
  Receipt Date: 20140130
  Transmission Date: 20141002
  Serious: Yes (Death, Other)
  Sender: FDA-Public Use
  Company Number: JP-OTSUKA-JP-2013-12316

PATIENT
  Age: 80 Year
  Sex: Female

DRUGS (2)
  1. SAMSCA [Suspect]
     Indication: CARDIAC FAILURE
     Dosage: 15 MG MILLIGRAM(S), QD
     Route: 048
  2. LASIX [Suspect]
     Dosage: UNK

REACTIONS (2)
  - Pneumonia [Fatal]
  - Hypernatraemia [Not Recovered/Not Resolved]
